FAERS Safety Report 5254758-2 (Version None)
Quarter: 2007Q1

REPORT INFORMATION
  Report Type: 
  Country: None (occurrence: None)
  Receive Date: 20070228
  Receipt Date: 20070219
  Transmission Date: 20070707
  Serious: Yes (Other)
  Sender: FDA-Public Use
  Company Number: 2007SP003267

PATIENT
  Age: 60 Year
  Sex: Male
  Weight: 84.369 kg

DRUGS (4)
  1. PEG-INTRON [Suspect]
     Indication: HEPATITIS C
     Dosage: ; SC
     Route: 058
     Dates: start: 20060120
  2. RIBAVIRIN [Suspect]
     Indication: HEPATITIS C
     Dosage: ; PO
     Route: 048
     Dates: start: 20060120
  3. GLYBURIDE W/METFORMIN HYDROCHLORIDE [Concomitant]
  4. PRILOSEC /00661201/ [Concomitant]

REACTIONS (2)
  - ANAEMIA [None]
  - RENAL CELL CARCINOMA STAGE UNSPECIFIED [None]
